FAERS Safety Report 15582541 (Version 1)
Quarter: 2018Q4

REPORT INFORMATION
  Report Type: Spontaneous
  Country: US (occurrence: US)
  Receive Date: 20181030
  Receipt Date: 20181030
  Transmission Date: 20190205
  Serious: No
  Sender: FDA-Public Use
  Company Number: None

PATIENT
  Age: 63 Year
  Sex: Female

DRUGS (1)
  1. FORTEO [Suspect]
     Active Substance: TERIPARATIDE
     Indication: ILL-DEFINED DISORDER
     Route: 030
     Dates: start: 20180321, end: 20180904

REACTIONS (3)
  - Fatigue [None]
  - Treatment noncompliance [None]
  - Memory impairment [None]

NARRATIVE: CASE EVENT DATE: 20180321
